FAERS Safety Report 13718646 (Version 3)
Quarter: 2017Q4

REPORT INFORMATION
  Report Type: Spontaneous
  Country: BR (occurrence: BR)
  Receive Date: 20170705
  Receipt Date: 20171016
  Transmission Date: 20180320
  Serious: Yes (Other)
  Sender: FDA-Public Use
  Company Number: BR-ABBVIE-17P-020-2027464-00

PATIENT
  Sex: Female

DRUGS (14)
  1. DEPAKOTE [Suspect]
     Active Substance: DIVALPROEX SODIUM
     Indication: PETIT MAL EPILEPSY
     Route: 065
  2. FLANAX CAPS [Suspect]
     Active Substance: NAPROXEN
     Indication: PAIN
     Route: 065
  3. FRISIUM [Concomitant]
     Active Substance: CLOBAZAM
     Indication: PETIT MAL EPILEPSY
  4. CARBAMAZEPINE. [Concomitant]
     Active Substance: CARBAMAZEPINE
     Indication: SYNCOPE
  5. DEPAKOTE [Suspect]
     Active Substance: DIVALPROEX SODIUM
     Route: 065
  6. DEPAKOTE [Suspect]
     Active Substance: DIVALPROEX SODIUM
     Route: 065
  7. FRISIUM [Concomitant]
     Active Substance: CLOBAZAM
     Indication: SLEEP DISORDER
  8. CARBAMAZEPINE. [Concomitant]
     Active Substance: CARBAMAZEPINE
     Indication: PETIT MAL EPILEPSY
  9. DEPAKOTE [Suspect]
     Active Substance: DIVALPROEX SODIUM
     Route: 065
     Dates: end: 2013
  10. GARDENAL [Concomitant]
     Active Substance: PHENOBARBITAL
     Indication: PETIT MAL EPILEPSY
  11. DEPAKOTE [Suspect]
     Active Substance: DIVALPROEX SODIUM
     Indication: SEIZURE
     Route: 065
  12. FRISIUM [Concomitant]
     Active Substance: CLOBAZAM
     Indication: SYNCOPE
     Dosage: BETWEEN 8:30 TO 9:00 AM, AND BETWEEN 8:30 TO 9:00 PM
  13. DEPAKENE [Suspect]
     Active Substance: VALPROIC ACID
     Indication: PRODUCT USED FOR UNKNOWN INDICATION
     Route: 065
  14. HOLMES H [Concomitant]
     Indication: HYPERTENSION
     Dosage: 1 TABLET AT WAKING UP, UNKNOWN FORM STRENGTH

REACTIONS (14)
  - Petit mal epilepsy [Recovering/Resolving]
  - Product quality issue [Unknown]
  - Syncope [Recovering/Resolving]
  - Coordination abnormal [Unknown]
  - Dyspnoea [Unknown]
  - Fall [Unknown]
  - Gait disturbance [Unknown]
  - Fatigue [Unknown]
  - Nasal septum deviation [Unknown]
  - Drug ineffective [Unknown]
  - Hypertension [Recovering/Resolving]
  - Blood pressure inadequately controlled [Recovered/Resolved]
  - Drug effect incomplete [Unknown]
  - Nausea [Unknown]
